FAERS Safety Report 6831357-X (Version None)
Quarter: 2010Q3

REPORT INFORMATION
  Report Type: 
  Country: None (occurrence: None)
  Receive Date: 20100712
  Receipt Date: 20070212
  Transmission Date: 20110219
  Serious: No
  Sender: FDA-Public Use
  Company Number: US-PFIZER INC-2007012445

PATIENT
  Sex: Female
  Weight: 58.97 kg

DRUGS (6)
  1. CHANTIX [Interacting]
     Indication: SMOKING CESSATION THERAPY
     Dates: start: 20070201, end: 20070202
  2. CIPROFLOXACIN [Suspect]
     Indication: BRONCHITIS
     Dates: start: 20070201
  3. DRUG, UNSPECIFIED [Interacting]
  4. SEROQUEL [Concomitant]
  5. LEXAPRO [Concomitant]
  6. VALIUM [Concomitant]

REACTIONS (7)
  - ABDOMINAL PAIN UPPER [None]
  - DECREASED APPETITE [None]
  - DIARRHOEA [None]
  - DRUG INTERACTION [None]
  - DRUG WITHDRAWAL SYNDROME [None]
  - TREMOR [None]
  - VOMITING [None]
